FAERS Safety Report 5958472-7 (Version None)
Quarter: 2008Q4

REPORT INFORMATION
  Report Type: 
  Country: None (occurrence: None)
  Receive Date: 20081119
  Receipt Date: 20081107
  Transmission Date: 20090506
  Serious: Yes (Other)
  Sender: FDA-Public Use
  Company Number: ES-ROCHE-595990

PATIENT
  Age: 56 Year
  Sex: Female

DRUGS (5)
  1. MYCOPHENOLATE MOFETIL [Suspect]
     Route: 065
  2. ORTHOCLONE OKT3 [Suspect]
     Dosage: GIVEN FOR FOUR DAYS
     Route: 065
  3. CYCLOSPORINE [Suspect]
     Route: 065
  4. PREDNISONE [Suspect]
     Route: 065
  5. PREDNISONE [Suspect]
     Route: 065

REACTIONS (1)
  - HEART TRANSPLANT REJECTION [None]
